FAERS Safety Report 14567425 (Version 14)
Quarter: 2019Q4

REPORT INFORMATION
  Report Type: Report from Study
  Country: DE (occurrence: DE)
  Receive Date: 20180223
  Receipt Date: 20191105
  Transmission Date: 20200122
  Serious: Yes (Hospitalization, Other)
  Sender: FDA-Public Use
  Company Number: DE-MYLANLABS-2018M1011769

PATIENT
  Age: 75 Year
  Sex: Male
  Weight: 81 kg

DRUGS (44)
  1. QUETIAPINE. [Suspect]
     Active Substance: QUETIAPINE
     Indication: PRODUCT USED FOR UNKNOWN INDICATION
     Dosage: 25 MILLIGRAM, QD
     Route: 048
  2. TOCILIZUMAB. [Suspect]
     Active Substance: TOCILIZUMAB
     Dosage: 324 MILLIGRAM, QD (162 MG, BID)
     Route: 058
     Dates: start: 20140601, end: 201506
  3. TOCILIZUMAB. [Suspect]
     Active Substance: TOCILIZUMAB
     Dosage: 162 MILLIGRAM, QD
     Route: 058
     Dates: start: 20180131
  4. FRAXIPARIN [Suspect]
     Active Substance: NADROPARIN CALCIUM
     Indication: VENOUS THROMBOSIS LIMB
     Dosage: UNK
     Route: 065
     Dates: start: 201507
  5. ESCITALOPRAM [Concomitant]
     Active Substance: ESCITALOPRAM OXALATE
     Dosage: 8 GTT DROPS ((DROP (1/12 MILLILITRE)
     Route: 048
  6. LISIHEXAL [Concomitant]
     Active Substance: LISINOPRIL
     Indication: PRODUCT USED FOR UNKNOWN INDICATION
     Dosage: 20 MG,UNK
     Route: 065
  7. TOCILIZUMAB. [Suspect]
     Active Substance: TOCILIZUMAB
     Dosage: 162 MG, UNK
     Route: 058
  8. TOCILIZUMAB. [Suspect]
     Active Substance: TOCILIZUMAB
     Dosage: 162 MILLIGRAM, QW
     Route: 058
     Dates: start: 20190227, end: 20190327
  9. COLECALCIFEROL [Suspect]
     Active Substance: CHOLECALCIFEROL
     Indication: OSTEOPOROSIS
     Dosage: 1000 INTERNATIONAL UNIT
     Route: 048
     Dates: start: 201204
  10. CORTISONE ACETATE. [Concomitant]
     Active Substance: CORTISONE ACETATE
     Indication: PRODUCT USED FOR UNKNOWN INDICATION
     Dosage: 10 MG,UNK
     Route: 065
  11. DENOSUMAB [Suspect]
     Active Substance: DENOSUMAB
     Indication: OSTEOPOROSIS
     Dosage: 60 MILLIGRAM, QMO
     Route: 058
     Dates: start: 201405
  12. COLECALCIFEROL [Concomitant]
     Active Substance: CHOLECALCIFEROL
     Indication: OSTEOPOROSIS
     Dosage: 1000 IU, UNK
     Route: 048
     Dates: start: 201204
  13. CLEXANE [Suspect]
     Active Substance: ENOXAPARIN SODIUM
     Indication: VENOUS THROMBOSIS LIMB
     Dosage: UNK
     Route: 065
     Dates: start: 201507
  14. TOCILIZUMAB. [Suspect]
     Active Substance: TOCILIZUMAB
     Indication: VASCULITIS
     Dosage: 162 MG, 10 DAY
     Route: 058
     Dates: start: 20150706
  15. TOCILIZUMAB. [Suspect]
     Active Substance: TOCILIZUMAB
     Dosage: 162 MILLIGRAM, Q3W
     Route: 058
     Dates: start: 201811
  16. ENOXAPARIN SODIUM. [Suspect]
     Active Substance: ENOXAPARIN SODIUM
     Indication: VENOUS THROMBOSIS LIMB
     Dosage: UNK
     Route: 065
     Dates: start: 201507
  17. NADROPARINE [Suspect]
     Active Substance: NADROPARIN
     Indication: VENOUS THROMBOSIS LIMB
     Dosage: UNK
     Route: 065
  18. ESCITALOPRAM [Concomitant]
     Active Substance: ESCITALOPRAM OXALATE
     Dosage: 5 GTT DROPS
     Route: 048
  19. DENOSUMAB [Concomitant]
     Active Substance: DENOSUMAB
     Indication: PRODUCT USED FOR UNKNOWN INDICATION
  20. QUETIAPINE. [Suspect]
     Active Substance: QUETIAPINE
     Dosage: 25 MILLIGRAM, QD
     Route: 065
  21. TOCILIZUMAB. [Suspect]
     Active Substance: TOCILIZUMAB
     Dosage: 162 MG, BID
     Route: 058
     Dates: start: 20150607
  22. TOCILIZUMAB. [Suspect]
     Active Substance: TOCILIZUMAB
     Dosage: 162 MG, BID
     Route: 058
     Dates: start: 20140601, end: 201506
  23. TOCILIZUMAB. [Suspect]
     Active Substance: TOCILIZUMAB
     Dosage: 324 MILLIGRAM, BID
     Route: 058
     Dates: start: 20150706, end: 20171012
  24. TOCILIZUMAB. [Suspect]
     Active Substance: TOCILIZUMAB
     Dosage: 162 MILLIGRAM, BID
     Route: 058
     Dates: start: 20180131
  25. TOCILIZUMAB. [Suspect]
     Active Substance: TOCILIZUMAB
     Dosage: 324 MILLIGRAM, QD (162 MG, BID)
     Route: 058
     Dates: start: 201506
  26. TOCILIZUMAB. [Suspect]
     Active Substance: TOCILIZUMAB
     Dosage: 162 MILLIGRAM, 9 DAYS
     Route: 058
     Dates: start: 20190328, end: 20190404
  27. PROLIA [Suspect]
     Active Substance: DENOSUMAB
     Dosage: 60 MILLIGRAM, 6 MONTHS
     Route: 058
     Dates: start: 201405
  28. PANTOPRAZOLE [Concomitant]
     Active Substance: PANTOPRAZOLE
     Indication: PRODUCT USED FOR UNKNOWN INDICATION
     Dosage: UNK
     Route: 065
  29. ESCITALOPRAM [Concomitant]
     Active Substance: ESCITALOPRAM OXALATE
     Indication: PRODUCT USED FOR UNKNOWN INDICATION
     Dosage: 10 GTT DROPS (10 DF,UNK)
     Route: 048
  30. TOCILIZUMAB. [Suspect]
     Active Substance: TOCILIZUMAB
     Dosage: 162 MG, EVERY 10 DAYS
     Route: 058
     Dates: start: 20180414
  31. TOCILIZUMAB. [Suspect]
     Active Substance: TOCILIZUMAB
     Dosage: 162 MILLIGRAM, 14 DAYS
     Route: 058
     Dates: start: 201704, end: 20171025
  32. TOCILIZUMAB. [Suspect]
     Active Substance: TOCILIZUMAB
     Dosage: 324 MILLIGRAM, QD (162 MG, BID)
     Route: 058
     Dates: start: 20150706
  33. TOCILIZUMAB. [Suspect]
     Active Substance: TOCILIZUMAB
     Dosage: 324 MILLIGRAM, 12 DAYS
     Route: 058
     Dates: start: 20150706, end: 20171025
  34. PROLIA [Suspect]
     Active Substance: DENOSUMAB
     Indication: OSTEOPOROSIS
     Dosage: 60 MG, QMO
     Route: 065
     Dates: start: 201405
  35. TOCILIZUMAB. [Suspect]
     Active Substance: TOCILIZUMAB
     Indication: RHEUMATOID ARTHRITIS
     Dosage: 162 MILLIGRAM, Q2W
     Route: 058
     Dates: start: 201704, end: 20171025
  36. TOCILIZUMAB. [Suspect]
     Active Substance: TOCILIZUMAB
     Indication: TEMPORAL ARTERITIS
     Dosage: 162 MG, 12 DAY
     Route: 058
  37. TOCILIZUMAB. [Suspect]
     Active Substance: TOCILIZUMAB
     Dosage: 162 MG, EVERY 14 DAYS
     Route: 058
     Dates: start: 20180414
  38. TOCILIZUMAB. [Suspect]
     Active Substance: TOCILIZUMAB
     Dosage: 162 MG, 10 DAYS
     Route: 058
     Dates: start: 20180414
  39. DENOSUMAB [Concomitant]
     Active Substance: DENOSUMAB
     Indication: OSTEOPOROSIS
     Dosage: UNK
     Route: 058
     Dates: start: 201405
  40. AMLODIPIN                          /00972401/ [Concomitant]
     Active Substance: AMLODIPINE BESYLATE
  41. TOCILIZUMAB. [Suspect]
     Active Substance: TOCILIZUMAB
     Indication: MYALGIA
     Dosage: 162 MG, QW (162 MG, UNK, WEEKLY)
     Route: 058
     Dates: start: 20140601, end: 201506
  42. TOCILIZUMAB. [Suspect]
     Active Substance: TOCILIZUMAB
     Dosage: 162 MG, BID
     Route: 058
     Dates: start: 20150706
  43. TOCILIZUMAB. [Suspect]
     Active Substance: TOCILIZUMAB
     Dosage: 162 MG, Q10D
     Route: 058
     Dates: start: 20170414, end: 20171025
  44. TOCILIZUMAB. [Suspect]
     Active Substance: TOCILIZUMAB
     Dosage: 162 MILLIGRAM, QD

REACTIONS (26)
  - Soft tissue disorder [Recovered/Resolved]
  - Acetabulum fracture [Recovering/Resolving]
  - Fall [Unknown]
  - Suture rupture [Recovered/Resolved]
  - Hyperaesthesia [Unknown]
  - Wound dehiscence [Recovered/Resolved]
  - Eye inflammation [Recovering/Resolving]
  - Bronchitis [Not Recovered/Not Resolved]
  - C-reactive protein increased [Recovering/Resolving]
  - Off label use [Unknown]
  - Lymphoedema [Recovered/Resolved]
  - Platelet count decreased [Unknown]
  - Lymphocele [Recovered/Resolved]
  - Erysipelas [Recovering/Resolving]
  - Sepsis [Recovering/Resolving]
  - Venous thrombosis limb [Not Recovered/Not Resolved]
  - Depression [Not Recovered/Not Resolved]
  - Product use in unapproved indication [Unknown]
  - Rash erythematous [Unknown]
  - Dysuria [Unknown]
  - Inappropriate schedule of product administration [Unknown]
  - Prostate cancer [Recovered/Resolved]
  - Sleep disorder [Unknown]
  - Autoimmune disorder [Unknown]
  - Impaired healing [Recovered/Resolved]
  - Leukopenia [Recovered/Resolved]

NARRATIVE: CASE EVENT DATE: 201407
